FAERS Safety Report 6369883-2 (Version None)
Quarter: 2009Q3

REPORT INFORMATION
  Report Type: 
  Country: None (occurrence: None)
  Receive Date: 20090923
  Receipt Date: 20070509
  Transmission Date: 20100115
  Serious: Yes (Other)
  Sender: FDA-Public Use
  Company Number: US-ASTRAZENECA-2006UW10970

PATIENT
  Age: 40 Year
  Sex: Male
  Weight: 86 kg

DRUGS (32)
  1. SEROQUEL [Suspect]
     Indication: DEPRESSION
     Dosage: 100-600 MG
     Route: 048
     Dates: start: 20050612
  2. ABILIFY [Concomitant]
     Route: 065
  3. HALDOL [Concomitant]
     Route: 065
  4. ZYPREXA [Concomitant]
     Dates: start: 20020601, end: 20020901
  5. TYLENOL (CAPLET) [Concomitant]
     Indication: PYREXIA
     Dosage: 30-650MG
     Route: 048
     Dates: start: 20050708
  6. WELLBUTRIN [Concomitant]
     Dosage: 75-150MG
     Route: 048
     Dates: start: 20050612
  7. LOPRESSOR [Concomitant]
     Route: 048
     Dates: start: 20060801
  8. COUMADIN [Concomitant]
     Dosage: 5-10MG
     Route: 048
     Dates: start: 20050612
  9. REMERON [Concomitant]
     Route: 048
     Dates: start: 20060909
  10. ZESTRIL [Concomitant]
     Dosage: 2.5-5MG
     Route: 048
     Dates: start: 20050613
  11. PROTONIX [Concomitant]
     Dates: start: 20060507
  12. LOVENOX [Concomitant]
     Dosage: 80-150MG
     Dates: start: 20050708
  13. HEPARIN [Concomitant]
     Dosage: 1000-5000 UNIT
     Dates: start: 20050616
  14. ATROVENT [Concomitant]
     Dosage: STRENGTH-0.5MG/2.5ML
     Dates: start: 20061201
  15. MORPHINE SULFATE INJ [Concomitant]
     Dosage: 10 MG/ML
     Dates: start: 20080211
  16. METOCLOPRAMIDE [Concomitant]
     Dosage: 10MG/2ML
     Dates: start: 20061201
  17. HYDROCHLOROTHIAZIDE [Concomitant]
     Route: 048
     Dates: start: 20070727
  18. GLIPIZIDE [Concomitant]
     Dates: start: 20080213
  19. AVANDIA [Concomitant]
     Dates: start: 20080323
  20. NIFEDIPINE [Concomitant]
     Route: 048
     Dates: start: 20080212
  21. RISPERIDONE [Concomitant]
     Dates: start: 20060801
  22. GEMFIBROZIL [Concomitant]
     Dates: start: 20080211
  23. ENALAPRIL MALEATE [Concomitant]
     Dates: start: 20080212
  24. ACTOS [Concomitant]
     Dates: start: 20080323
  25. SYNTHROID [Concomitant]
     Dates: start: 20080212
  26. PAXIL [Concomitant]
     Dates: start: 20050708
  27. ATIVAN [Concomitant]
     Dosage: 1-2 MG
     Route: 048
     Dates: start: 20050112
  28. PROLIXIN [Concomitant]
     Dosage: 1-3MG
     Route: 048
     Dates: start: 20050708
  29. TRILEPTAL [Concomitant]
     Route: 048
     Dates: start: 20050612
  30. ESOMEPRAZOLE [Concomitant]
     Route: 048
     Dates: start: 20060226
  31. DEPAKOTE [Concomitant]
     Route: 048
     Dates: start: 20060225
  32. ALBUTEROL [Concomitant]
     Dosage: STRENGTH-2.5MG/3ML
     Dates: start: 20061201

REACTIONS (2)
  - DIABETES MELLITUS [None]
  - DIABETIC COMA [None]
